FAERS Safety Report 7124621 (Version 7)
Quarter: 2014Q2

REPORT INFORMATION
  Report Type: Spontaneous
  Country: US (occurrence: US)
  Receive Date: 20090922
  Receipt Date: 20140407
  Transmission Date: 20141212
  Serious: Yes (Hospitalization, Other)
  Sender: FDA-Public Use
  Company Number: US-ALEXION-A200900751

PATIENT
  Age: 72 Year
  Sex: Male

DRUGS (6)
  1. SOLIRIS [Suspect]
     Indication: PAROXYSMAL NOCTURNAL HAEMOGLOBINURIA
     Dosage: 600 MG, QW
     Route: 042
     Dates: start: 20090903
  2. OXYCONTIN [Concomitant]
     Indication: PAIN
     Dosage: UNK, PRN
     Route: 048
  3. VICODIN [Concomitant]
     Indication: PAIN
     Dosage: UNK, PRN
     Route: 048
  4. LASIX                              /00032601/ [Concomitant]
     Dosage: UNK
     Route: 048
  5. ALDACTONE                          /00006201/ [Concomitant]
     Dosage: UNK
     Route: 048
  6. SYNTHROID [Concomitant]

REACTIONS (7)
  - Cardiac failure congestive [Unknown]
  - Packed red blood cell transfusion [Unknown]
  - Pneumonia [Unknown]
  - Sepsis [Unknown]
  - Tachyarrhythmia [Unknown]
  - Pyrexia [Unknown]
  - Fatigue [Unknown]
